FAERS Safety Report 7969980-1 (Version None)
Quarter: 2011Q4

REPORT INFORMATION
  Report Type: 
  Country: None (occurrence: None)
  Receive Date: 20111212
  Receipt Date: 20111129
  Transmission Date: 20120403
  Serious: Yes (Hospitalization)
  Sender: FDA-Public Use
  Company Number: TR-US-EMD SERONO, INC.-7099023

PATIENT
  Sex: Female
  Weight: 58 kg

DRUGS (4)
  1. LIORESAL TB [Concomitant]
     Indication: MUSCLE SPASTICITY
     Route: 048
     Dates: start: 20030101
  2. MODAFANIL [Concomitant]
     Indication: SLEEP DISORDER
     Route: 048
     Dates: start: 20050101
  3. ESMAD [Concomitant]
     Indication: DEPRESSION
     Route: 048
     Dates: start: 20100101
  4. REBIF [Suspect]
     Indication: MULTIPLE SCLEROSIS
     Route: 058
     Dates: start: 20110801, end: 20111001

REACTIONS (3)
  - GAIT DISTURBANCE [None]
  - TREMOR [None]
  - URINARY INCONTINENCE [None]
